FAERS Safety Report 5104902-2 (Version None)
Quarter: 2006Q3

REPORT INFORMATION
  Report Type: 
  Country: None (occurrence: None)
  Receive Date: 20060914
  Receipt Date: 20060807
  Transmission Date: 20061208
  Serious: Yes (Hospitalization)
  Sender: FDA-Public Use
  Company Number: PHEH2006US10014

PATIENT
  Age: 59 Year
  Sex: Male

DRUGS (5)
  1. GLEEVEC [Suspect]
     Indication: CHRONIC MYELOID LEUKAEMIA
     Dosage: 400 MG, BID
     Route: 048
     Dates: start: 20060201, end: 20060701
  2. GLEEVEC [Suspect]
     Dosage: 600 MG, QD
     Route: 048
     Dates: start: 20060701
  3. GLEEVEC [Suspect]
     Dosage: 800 MG, QOD
     Route: 048
     Dates: start: 20060701, end: 20060701
  4. GLEEVEC [Suspect]
     Dosage: 400 MG, QD
     Route: 048
     Dates: start: 20030101, end: 20060201
  5. GLEEVEC [Suspect]
     Dosage: 800 MG, QD
     Route: 048

REACTIONS (11)
  - BLISTER [None]
  - BLOOD POTASSIUM DECREASED [None]
  - BONE PAIN [None]
  - MYALGIA [None]
  - OEDEMA PERIPHERAL [None]
  - OPEN WOUND [None]
  - PYREXIA [None]
  - TREATMENT NONCOMPLIANCE [None]
  - WHITE BLOOD CELL COUNT DECREASED [None]
  - WHITE BLOOD CELL COUNT INCREASED [None]
  - WOUND COMPLICATION [None]
